FAERS Safety Report 5788809-3 (Version None)
Quarter: 2008Q2

REPORT INFORMATION
  Report Type: 
  Country: None (occurrence: None)
  Receive Date: 20080626
  Receipt Date: 20080616
  Transmission Date: 20081010
  Serious: Yes (Other)
  Sender: FDA-Public Use
  Company Number: JP-WATSON-2008-03659

PATIENT
  Age: 54 Year
  Sex: Male

DRUGS (3)
  1. PROBENECID (WATSON LABORATORIES) [Suspect]
     Indication: PROPHYLAXIS
     Dosage: 3 HR PRIOR TO CIDOFOVIR ADMINISTRATION
     Dates: start: 20070101, end: 20070101
  2. PROBENECID (WATSON LABORATORIES) [Suspect]
     Dosage: 1 G AT 2 HRS + 8HRS AFTER CIDOFOVIR ADMINISTRATION
     Route: 065
     Dates: start: 20070101
  3. CIDOFOVIR [Suspect]
     Indication: CYTOMEGALOVIRUS CHORIORETINITIS
     Dosage: 5 MG/KG PER DAY, EVERY OTHER WEEK
     Route: 065
     Dates: start: 20070101, end: 20070101

REACTIONS (2)
  - ANAEMIA HAEMOLYTIC AUTOIMMUNE [None]
  - APLASIA PURE RED CELL [None]
